FAERS Safety Report 9363074 (Version 1)
Quarter: 2013Q2

REPORT INFORMATION
  Report Type: Spontaneous
  Country: US (occurrence: US)
  Receive Date: 20130624
  Receipt Date: 20130624
  Transmission Date: 20140414
  Serious: Yes (Other)
  Sender: FDA-Public Use
  Company Number: US-PFIZER INC-2013187493

PATIENT
  Age: 47 Year
  Sex: Female
  Weight: 34.5 kg

DRUGS (3)
  1. LYRICA [Suspect]
     Indication: FIBROMYALGIA
     Dosage: 50 MG, 2X/DAY
     Dates: start: 2011, end: 2013
  2. LOTREL [Concomitant]
     Indication: HYPERTENSION
     Dosage: 5 (AMLODIPINE)/40 (BENAZEPRIL HYDROCHLORIDE) MG, 1X/DAY
  3. DYAZIDE [Concomitant]
     Indication: HYPERTENSION
     Dosage: UNK, 1X/DAY

REACTIONS (3)
  - Weight increased [Unknown]
  - Hunger [Unknown]
  - Weight decreased [Unknown]
